FAERS Safety Report 11202834 (Version 1)
Quarter: 2015Q2

REPORT INFORMATION
  Report Type: Spontaneous
  Country: US (occurrence: None)
  Receive Date: 20150618
  Receipt Date: 20150618
  Transmission Date: 20150821
  Serious: Yes (Life-Threatening, Hospitalization)
  Sender: FDA-Public Use
  Company Number: None

PATIENT
  Age: 67 Year
  Sex: Male

DRUGS (2)
  1. HEPARIN [Suspect]
     Active Substance: HEPARIN SODIUM
     Indication: ATRIAL FIBRILLATION
     Dosage: 5000 UNITS
     Route: 058
     Dates: start: 20091208, end: 20091211
  2. HEPARIN [Suspect]
     Active Substance: HEPARIN SODIUM
     Indication: SURGERY
     Dosage: 5000 UNITS
     Route: 058
     Dates: start: 20091208, end: 20091211

REACTIONS (2)
  - Thrombocytopenia [None]
  - Cyanosis [None]

NARRATIVE: CASE EVENT DATE: 20091211
